FAERS Safety Report 6424992-4 (Version None)
Quarter: 2009Q4

REPORT INFORMATION
  Report Type: 
  Country: None (occurrence: None)
  Receive Date: 20091103
  Receipt Date: 20091021
  Transmission Date: 20100525
  Serious: Yes (Life-Threatening, Hospitalization, Disabling, Other)
  Sender: FDA-Public Use
  Company Number: JP-PFIZER INC-2009268703

PATIENT
  Age: 61 Year
  Sex: Female
  Weight: 58.6 kg

DRUGS (9)
  1. LIPITOR [Suspect]
     Indication: HYPERLIPIDAEMIA
     Dosage: 10 MG, 1X/DAY,UID
     Route: 048
     Dates: start: 20040701, end: 20090905
  2. PANALDINE [Suspect]
     Indication: CORONARY ARTERY DISEASE
     Dosage: 100 MG, 2X/DAY
     Route: 048
     Dates: start: 20090713, end: 20090810
  3. PLETAL [Suspect]
     Indication: ARTERIOSCLEROSIS OBLITERANS
     Dosage: 100 MG, DAILY
     Route: 048
     Dates: start: 20070202, end: 20090905
  4. GASTER [Concomitant]
     Dosage: UNK
     Dates: start: 20040701, end: 20090905
  5. LASIX [Concomitant]
     Dosage: UNK
     Dates: start: 20050801, end: 20090905
  6. HALCION [Concomitant]
     Dosage: UNK
     Dates: start: 20040801, end: 20090905
  7. PURSENNID [Concomitant]
     Dosage: UNK
     Dates: start: 20040801, end: 20090905
  8. ASPIRIN [Concomitant]
     Dosage: UNK
     Dates: start: 20070521, end: 20090905
  9. EPOGIN [Concomitant]
     Dosage: UNK
     Dates: start: 20060905, end: 20090904

REACTIONS (1)
  - HEPATITIS [None]
